FAERS Safety Report 7627596-0 (Version None)
Quarter: 2011Q3

REPORT INFORMATION
  Report Type: 
  Country: None (occurrence: None)
  Receive Date: 20110721
  Receipt Date: 20110714
  Transmission Date: 20111222
  Serious: Yes (Hospitalization, Other)
  Sender: FDA-Public Use
  Company Number: US-PFIZER INC-2011001450

PATIENT
  Sex: Female

DRUGS (15)
  1. ALBUTEROL SULFATE AUTOHALER [Concomitant]
     Indication: CHRONIC OBSTRUCTIVE PULMONARY DISEASE
     Dosage: UNK
     Dates: start: 20070101, end: 20090101
  2. NEXIUM [Concomitant]
     Indication: GASTROOESOPHAGEAL REFLUX DISEASE
     Dosage: UNK
     Dates: start: 20070101, end: 20100101
  3. SYNTHROID [Concomitant]
     Indication: HYPOTHYROIDISM
     Dosage: UNK
     Dates: start: 20070101
  4. BUTALBITAL [Concomitant]
     Indication: HEADACHE
     Dosage: UNK
     Dates: start: 20070101, end: 20100101
  5. VALIUM [Concomitant]
  6. CRESTOR [Concomitant]
     Indication: HYPERLIPIDAEMIA
     Dosage: UNK
     Dates: start: 20070101
  7. CHANTIX [Suspect]
     Indication: SMOKING CESSATION THERAPY
     Dosage: STARTER MONTH PACK
     Route: 048
     Dates: start: 20081001, end: 20081101
  8. PROZAC [Concomitant]
     Indication: DEPRESSION
     Dosage: UNK
     Dates: start: 20070101
  9. PROMETHAZINE [Concomitant]
     Indication: ANTIALLERGIC THERAPY
     Dosage: UNK
     Dates: start: 20070101, end: 20090101
  10. LEVOTHYROXINE [Concomitant]
     Indication: HYPOTHYROIDISM
     Dosage: UNK
     Dates: start: 20070101, end: 20100101
  11. VALIUM [Concomitant]
     Indication: ANXIETY
     Dosage: UNK
     Dates: start: 20070101
  12. CARISOPRODOL [Concomitant]
     Indication: BACK PAIN
     Dosage: UNK
     Dates: start: 20070101, end: 20100101
  13. FUROSEMIDE [Concomitant]
     Indication: HYPERTENSION
     Dosage: UNK
     Dates: start: 20070101, end: 20100101
  14. PROZAC [Concomitant]
  15. HYDROCODONE [Concomitant]
     Indication: BACK PAIN
     Dosage: UNK
     Dates: start: 20070101, end: 20100101

REACTIONS (6)
  - ANXIETY [None]
  - SUICIDE ATTEMPT [None]
  - AGGRESSION [None]
  - INTENTIONAL OVERDOSE [None]
  - DEPRESSION [None]
  - MENTAL DISORDER [None]
